FAERS Safety Report 9925988 (Version 1)
Quarter: 2014Q1

REPORT INFORMATION
  Report Type: Spontaneous
  Country: DE (occurrence: DE)
  Receive Date: 20140226
  Receipt Date: 20140226
  Transmission Date: 20141002
  Serious: Yes (Other)
  Sender: FDA-Public Use
  Company Number: DE-ELI_LILLY_AND_COMPANY-DE201402005505

PATIENT
  Age: 32 Year
  Sex: Female

DRUGS (2)
  1. CYMBALTA [Suspect]
     Indication: DEPRESSION
     Dosage: 120 MG, QD
     Route: 048
     Dates: start: 20111214, end: 20120911
  2. VALDOXAN [Suspect]
     Indication: DEPRESSION
     Dosage: 25 MG, QD
     Route: 048

REACTIONS (2)
  - Placental insufficiency [Unknown]
  - Exposure during pregnancy [Unknown]
